FAERS Safety Report 8537689-1 (Version None)
Quarter: 2012Q3

REPORT INFORMATION
  Report Type: 
  Country: None (occurrence: None)
  Receive Date: 20120725
  Receipt Date: 20120720
  Transmission Date: 20120928
  Serious: Yes (Hospitalization, Other)
  Sender: FDA-Public Use
  Company Number: PHEH2012US010377

PATIENT
  Sex: Female
  Weight: 152 kg

DRUGS (5)
  1. PRISTIQ [Concomitant]
     Dosage: 100 MG, UNK
     Route: 048
  2. CALCIUM WITH VITAMIN D [Concomitant]
     Indication: BONE DISORDER
     Route: 048
  3. ADDERALL 5 [Concomitant]
     Indication: ATTENTION DEFICIT/HYPERACTIVITY DISORDER
     Dosage: 20 MG, UNK
  4. GILENYA [Suspect]
     Dosage: 0.5 MG, DAILY
     Route: 048
     Dates: start: 20101214
  5. HYDROCHLOROTHIAZIDE [Concomitant]
     Indication: HYPERTENSION
     Route: 048

REACTIONS (2)
  - ABDOMINAL PAIN LOWER [None]
  - INTESTINAL OBSTRUCTION [None]
